FAERS Safety Report 6692633-7 (Version None)
Quarter: 2010Q2

REPORT INFORMATION
  Report Type: 
  Country: None (occurrence: None)
  Receive Date: 20100422
  Receipt Date: 20100419
  Transmission Date: 20101027
  Serious: Yes (Hospitalization, Other)
  Sender: FDA-Public Use
  Company Number: CA-MERCK-1004USA02996

PATIENT
  Age: 59 Year
  Sex: Female

DRUGS (6)
  1. COZAAR [Suspect]
     Route: 048
  2. COPAXONE [Suspect]
     Indication: MULTIPLE SCLEROSIS
     Route: 058
     Dates: start: 20040115
  3. DIPHENHYDRAMINE HYDROCHLORIDE [Concomitant]
     Route: 065
  4. PHENYTOIN [Concomitant]
     Route: 065
  5. PREGABALIN [Concomitant]
     Route: 065
  6. ALBUTEROL [Concomitant]
     Route: 065

REACTIONS (4)
  - BLADDER DISORDER [None]
  - CARDIAC ARREST [None]
  - HAEMORRHAGE [None]
  - HYPOTENSION [None]
